FAERS Safety Report 4507379-0 (Version None)
Quarter: 2004Q4

REPORT INFORMATION
  Report Type: 
  Country: None (occurrence: None)
  Receive Date: 20041116
  Receipt Date: 20041105
  Transmission Date: 20050328
  Serious: Yes (Hospitalization)
  Sender: FDA-Public Use
  Company Number: HQWYE761118SEP03

PATIENT
  Age: 13 Year
  Sex: Male
  Weight: 39.5 kg

DRUGS (3)
  1. REFACTO [Suspect]
     Indication: FACTOR VIII DEFICIENCY
     Dosage: 1000 IU  1X PER 2 DAY, INTRAVENOUS
     Route: 042
     Dates: start: 20020101, end: 20030701
  2. REFACTO [Suspect]
     Indication: PROPHYLAXIS
     Dosage: 1000 IU  1X PER 2 DAY, INTRAVENOUS
     Route: 042
     Dates: start: 20020101, end: 20030701
  3. REFACTO [Suspect]

REACTIONS (7)
  - COAGULATION FACTOR VIII LEVEL DECREASED [None]
  - DRUG HALF-LIFE REDUCED [None]
  - HAEMORRHAGE [None]
  - HAEMORRHAGE INTRACRANIAL [None]
  - PHARMACEUTICAL PRODUCT COMPLAINT [None]
  - THERAPEUTIC RESPONSE DECREASED [None]
  - TRAUMATIC ARTHROPATHY [None]
